FAERS Safety Report 17831116 (Version 1)
Quarter: 2020Q2

REPORT INFORMATION
  Report Type: Spontaneous
  Country: HU (occurrence: HU)
  Receive Date: 20200527
  Receipt Date: 20200527
  Transmission Date: 20200714
  Serious: Yes (Other)
  Sender: FDA-Public Use
  Company Number: HU-PFIZER INC-2020208905

PATIENT
  Age: 56 Year
  Sex: Male

DRUGS (1)
  1. SUNITINIB MALATE. [Suspect]
     Active Substance: SUNITINIB MALATE
     Indication: RENAL CANCER METASTATIC
     Dosage: 4/2 DOSING SCHEME FOR 19 MONTHS

REACTIONS (11)
  - Cardiotoxicity [Unknown]
  - Asthenia [Unknown]
  - Asphyxia [Unknown]
  - Pruritus [Unknown]
  - Stomatitis [Unknown]
  - Palmar-plantar erythrodysaesthesia syndrome [Unknown]
  - Dry mouth [Unknown]
  - Blood pressure increased [Unknown]
  - Taste disorder [Unknown]
  - Decreased appetite [Unknown]
  - Diarrhoea [Unknown]
